FAERS Safety Report 14134143 (Version 1)
Quarter: 2017Q4

REPORT INFORMATION
  Report Type: Report from Study
  Country: None (occurrence: AT)
  Receive Date: 20171027
  Receipt Date: 20171027
  Transmission Date: 20180321
  Serious: Yes (Hospitalization)
  Sender: FDA-Public Use
  Company Number: AT-ABBVIE-17K-009-2120422-00

PATIENT
  Age: 75 Year
  Sex: Female

DRUGS (1)
  1. DUODOPA [Suspect]
     Active Substance: CARBIDOPA\LEVODOPA
     Indication: PARKINSON^S DISEASE
     Dosage: 16H THERAPY:?MD: 8.5ML, CR DAYTIME: 4.6ML/H; ED: 2.5ML
     Route: 050
     Dates: start: 20090102

REACTIONS (4)
  - Vasodilatation [Not Recovered/Not Resolved]
  - Stoma site discharge [Not Recovered/Not Resolved]
  - Fungal infection [Not Recovered/Not Resolved]
  - Stoma site erythema [Not Recovered/Not Resolved]

NARRATIVE: CASE EVENT DATE: 2017
